FAERS Safety Report 6285874-4 (Version None)
Quarter: 2009Q3

REPORT INFORMATION
  Report Type: 
  Country: None (occurrence: None)
  Receive Date: 20090728
  Receipt Date: 20090716
  Transmission Date: 20100115
  Serious: Yes (Death, Hospitalization)
  Sender: FDA-Public Use
  Company Number: CA-JNJFOC-20090706238

PATIENT
  Sex: Male
  Weight: 69 kg

DRUGS (2)
  1. REMICADE [Suspect]
     Route: 042
  2. REMICADE [Suspect]
     Indication: ANKYLOSING SPONDYLITIS
     Route: 042

REACTIONS (14)
  - ACUTE RESPIRATORY FAILURE [None]
  - AGITATION [None]
  - CARDIO-RESPIRATORY ARREST [None]
  - CLOSTRIDIAL INFECTION [None]
  - CONFUSIONAL STATE [None]
  - DEATH [None]
  - HALLUCINATION, VISUAL [None]
  - INFECTION [None]
  - LOSS OF CONSCIOUSNESS [None]
  - PARANOIA [None]
  - PNEUMONIA ASPIRATION [None]
  - RENAL AMYLOIDOSIS [None]
  - RENAL FAILURE CHRONIC [None]
  - SUBDURAL HAEMATOMA [None]
